FAERS Safety Report 8915103 (Version 1)
Quarter: 2012Q4

REPORT INFORMATION
  Report Type: 
  Country: JP (occurrence: JP)
  Receive Date: 20121119
  Receipt Date: 20121119
  Transmission Date: 20130627
  Serious: Yes (Death)
  Sender: FDA-Public Use
  Company Number: JP-ELI_LILLY_AND_COMPANY-JP201211001968

PATIENT
  Age: 84 Year
  Sex: Male

DRUGS (2)
  1. FORTEO [Suspect]
     Indication: OSTEOPOROSIS
     Dosage: 20 ug, qd
     Route: 058
  2. SPIRIVA [Concomitant]
     Dosage: 18 ug, UNK

REACTIONS (2)
  - Pneumonia [Fatal]
  - Emphysema [Fatal]
